FAERS Safety Report 9989657 (Version 1)
Quarter: 2014Q1

REPORT INFORMATION
  Report Type: Report from Study
  Country: US (occurrence: US)
  Receive Date: 20140310
  Receipt Date: 20140310
  Transmission Date: 20141002
  Serious: No
  Sender: FDA-Public Use
  Company Number: US-ABBVIE-13P-163-1133591-00

PATIENT
  Sex: Female

DRUGS (5)
  1. HUMIRA [Suspect]
     Indication: CROHN^S DISEASE
     Dates: start: 20130329
  2. PENTASA [Concomitant]
     Indication: CROHN^S DISEASE
  3. DOXEPIN [Concomitant]
     Indication: MIGRAINE
     Dosage: 50MG DAILY
  4. NADOLOL [Concomitant]
     Indication: MIGRAINE
     Dosage: 40MG DAILY
  5. LOESTRIN [Concomitant]
     Indication: MENSTRUATION IRREGULAR

REACTIONS (3)
  - Oropharyngeal pain [Not Recovered/Not Resolved]
  - Fatigue [Not Recovered/Not Resolved]
  - Lymphadenopathy [Not Recovered/Not Resolved]
